FAERS Safety Report 8889716 (Version 2)
Quarter: 2013Q2

REPORT INFORMATION
  Report Type: Spontaneous
  Country: US (occurrence: US)
  Receive Date: 20121107
  Receipt Date: 20130530
  Transmission Date: 20140414
  Serious: No
  Sender: FDA-Public Use
  Company Number: US-BIOGENIDEC-2012BI049800

PATIENT
  Age: 32 Year
  Sex: Male

DRUGS (1)
  1. AVONEX [Suspect]
     Indication: MULTIPLE SCLEROSIS
     Route: 030
     Dates: start: 20121010

REACTIONS (7)
  - Neuralgia [Not Recovered/Not Resolved]
  - Hypoaesthesia [Not Recovered/Not Resolved]
  - Muscle twitching [Recovered/Resolved]
  - Pain [Recovered/Resolved]
  - Paraesthesia [Not Recovered/Not Resolved]
  - Muscle tightness [Recovered/Resolved]
  - Influenza like illness [Not Recovered/Not Resolved]
